FAERS Safety Report 10635849 (Version 2)
Quarter: 2014Q4

REPORT INFORMATION
  Report Type: Spontaneous
  Country: DE (occurrence: DE)
  Receive Date: 20141205
  Receipt Date: 20141208
  Transmission Date: 20150529
  Serious: Yes (Other)
  Sender: FDA-Public Use
  Company Number: DE-MERCK-1411DEU009298

PATIENT
  Age: 57 Year
  Sex: Female
  Weight: 80 kg

DRUGS (1)
  1. PEGINTRON [Suspect]
     Active Substance: PEGINTERFERON ALFA-2B
     Indication: PRODUCT USED FOR UNKNOWN INDICATION
     Dosage: CLEARCLICK FERTIGPEN, 50 MCG
     Route: 058
     Dates: start: 201202

REACTIONS (2)
  - Underdose [Unknown]
  - Circumstance or information capable of leading to medication error [Unknown]

NARRATIVE: CASE EVENT DATE: 20141117
